FAERS Safety Report 9548573 (Version 1)
Quarter: 2013Q3

REPORT INFORMATION
  Report Type: Spontaneous
  Country: US (occurrence: None)
  Receive Date: 20130919
  Receipt Date: 20130919
  Transmission Date: 20140515
  Serious: Yes (Hospitalization)
  Sender: FDA-Public Use
  Company Number: CA-ALSI-201300229

PATIENT
  Sex: Male

DRUGS (1)
  1. OXYGEN [Suspect]
     Indication: CHRONIC OBSTRUCTIVE PULMONARY DISEASE
     Dosage: RESPIRATORY
     Dates: start: 201302

REACTIONS (2)
  - Thermal burn [None]
  - Intentional drug misuse [None]
